FAERS Safety Report 20599631 (Version 2)
Quarter: 2022Q1

REPORT INFORMATION
  Report Type: Spontaneous
  Country: US (occurrence: None)
  Receive Date: 20220316
  Receipt Date: 20220316
  Transmission Date: 20220423
  Serious: No
  Sender: FDA-Public Use
  Company Number: US-ROCHE-2881577

PATIENT
  Sex: Female

DRUGS (2)
  1. XOLAIR [Suspect]
     Active Substance: OMALIZUMAB
     Indication: Asthma
     Dosage: 150MG/ML PFS
     Route: 058
     Dates: start: 202011
  2. XOLAIR [Suspect]
     Active Substance: OMALIZUMAB
     Dosage: 150MG/ML PFS?STRENGTH: 75MG/0.5ML
     Route: 058
     Dates: start: 202011

REACTIONS (2)
  - Expired product administered [Unknown]
  - No adverse event [Unknown]
